FAERS Safety Report 10457694 (Version 4)
Quarter: 2015Q2

REPORT INFORMATION
  Report Type: Spontaneous
  Country: US (occurrence: US)
  Receive Date: 20140916
  Receipt Date: 20150625
  Transmission Date: 20150821
  Serious: Yes (Death, Hospitalization, Other)
  Sender: FDA-Public Use
  Company Number: US-MERCK-1409USA007401

PATIENT
  Sex: Female
  Weight: 56.24 kg

DRUGS (4)
  1. JANUMET [Suspect]
     Active Substance: METFORMIN HYDROCHLORIDE\SITAGLIPTIN PHOSPHATE
     Indication: TYPE 2 DIABETES MELLITUS
     Dosage: UNK
     Route: 048
     Dates: start: 2010, end: 2011
  2. JANUVIA [Suspect]
     Active Substance: SITAGLIPTIN PHOSPHATE
     Indication: TYPE 2 DIABETES MELLITUS
     Dosage: UNK
     Route: 048
     Dates: start: 2010, end: 2011
  3. BYETTA [Suspect]
     Active Substance: EXENATIDE
     Indication: TYPE 2 DIABETES MELLITUS
     Dosage: UNK
     Dates: start: 2010, end: 2011
  4. VICTOZA [Suspect]
     Active Substance: LIRAGLUTIDE
     Indication: TYPE 2 DIABETES MELLITUS
     Dosage: UNK
     Dates: start: 2010, end: 2011

REACTIONS (14)
  - Pancreatic carcinoma metastatic [Fatal]
  - Dehydration [Unknown]
  - Tachycardia [Unknown]
  - Metastases to liver [Unknown]
  - Hypertension [Unknown]
  - Hysterectomy [Unknown]
  - Contracted bladder [Unknown]
  - Hypercholesterolaemia [Unknown]
  - Musculoskeletal chest pain [Unknown]
  - Hepatomegaly [Unknown]
  - Asthenia [Unknown]
  - Hyperosmolar state [Unknown]
  - Diabetes mellitus inadequate control [Unknown]
  - Gastric disorder [Unknown]

NARRATIVE: CASE EVENT DATE: 201105
